FAERS Safety Report 16698947 (Version 1)
Quarter: 2019Q3

REPORT INFORMATION
  Report Type: Spontaneous
  Country: US (occurrence: US)
  Receive Date: 20190813
  Receipt Date: 20190813
  Transmission Date: 20191004
  Serious: No
  Sender: FDA-Public Use
  Company Number: US-TEVA-2019-US-1089261

PATIENT
  Age: 16 Year
  Sex: Female

DRUGS (1)
  1. SPRINTEC [Suspect]
     Active Substance: ETHINYL ESTRADIOL\NORGESTIMATE
     Indication: ACNE
     Dosage: 0.18/0.25; 0.215/0.035; 0.250
     Dates: start: 201907

REACTIONS (2)
  - Acne [Unknown]
  - Rash erythematous [Unknown]

NARRATIVE: CASE EVENT DATE: 201907
